FAERS Safety Report 25617744 (Version 1)
Quarter: 2025Q3

REPORT INFORMATION
  Report Type: Report from Study
  Country: CA (occurrence: CA)
  Receive Date: 20250729
  Receipt Date: 20250729
  Transmission Date: 20251020
  Serious: Yes (Other)
  Sender: UCB
  Company Number: CA-UCBSA-2025045513

PATIENT
  Sex: Male

DRUGS (3)
  1. BRIVARACETAM [Suspect]
     Active Substance: BRIVARACETAM
     Indication: Partial seizures
  2. BRIVARACETAM [Suspect]
     Active Substance: BRIVARACETAM
     Dosage: 15 MILLILITER, 2X/DAY (BID)
     Dates: start: 202507
  3. CENOBAMATE [Concomitant]
     Active Substance: CENOBAMATE
     Indication: Seizure

REACTIONS (2)
  - Seizure [Unknown]
  - Drug ineffective [Unknown]
